FAERS Safety Report 6177212-2 (Version None)
Quarter: 2009Q2

REPORT INFORMATION
  Report Type: 
  Country: None (occurrence: None)
  Receive Date: 20090504
  Receipt Date: 20090428
  Transmission Date: 20091009
  Serious: Yes (Hospitalization, Other)
  Sender: FDA-Public Use
  Company Number: PHEH2009US04185

PATIENT
  Age: 8 Year
  Sex: Male

DRUGS (1)
  1. FOCALIN XR [Suspect]
     Dosage: 15 CAPSULES AT ONCE
     Route: 048
     Dates: start: 20090428, end: 20090428

REACTIONS (4)
  - ACCIDENTAL OVERDOSE [None]
  - GASTRIC LAVAGE [None]
  - RESTLESSNESS [None]
  - TACHYCARDIA [None]
